FAERS Safety Report 4559176-8 (Version None)
Quarter: 2005Q1

REPORT INFORMATION
  Report Type: 
  Country: None (occurrence: None)
  Receive Date: 20050120
  Receipt Date: 20050120
  Transmission Date: 20050727
  Serious: Yes (Hospitalization, Other)
  Sender: FDA-Public Use
  Company Number: None

PATIENT

DRUGS (2)
  1. SIMVASTATIN [Suspect]
     Indication: LIPIDS ABNORMAL
     Dosage: 40 MG PO
     Route: 048
  2. PROPOFOL [Suspect]
     Dosage: X 1 DOSE  IV
     Route: 042

REACTIONS (2)
  - MUSCULAR WEAKNESS [None]
  - PROCEDURAL COMPLICATION [None]
